FAERS Safety Report 20634556 (Version 1)
Quarter: 2022Q1

REPORT INFORMATION
  Report Type: Spontaneous
  Country: US (occurrence: US)
  Receive Date: 20220325
  Receipt Date: 20220325
  Transmission Date: 20220423
  Serious: Yes (Other)
  Sender: FDA-Public Use
  Company Number: US-ASTELLAS-2022US010687

PATIENT
  Sex: Male

DRUGS (4)
  1. AMBISOME [Suspect]
     Active Substance: AMPHOTERICIN B
     Indication: Fungal infection
     Dosage: 250 MG (STRENGTH ALSO REPORTED AS 50 MG, UNKNOWN FREQ.
     Route: 065
     Dates: start: 20220214, end: 20220221
  2. AMBISOME [Suspect]
     Active Substance: AMPHOTERICIN B
     Indication: Immune system disorder
  3. PROGRAF [Suspect]
     Active Substance: TACROLIMUS
     Indication: Product used for unknown indication
     Dosage: UNK UNK, UNKNOWN FREQ.
     Route: 065
  4. PROGRAF [Suspect]
     Active Substance: TACROLIMUS
     Dosage: UNK UNK, UNKNOWN FREQ.
     Route: 065

REACTIONS (6)
  - Secondary immunodeficiency [Unknown]
  - Hepatic enzyme increased [Unknown]
  - Fungal infection [Unknown]
  - Blood sodium decreased [Not Recovered/Not Resolved]
  - Blood magnesium decreased [Not Recovered/Not Resolved]
  - Off label use [Unknown]

NARRATIVE: CASE EVENT DATE: 20220214
